FAERS Safety Report 6743075-7 (Version None)
Quarter: 2010Q2

REPORT INFORMATION
  Report Type: 
  Country: None (occurrence: None)
  Receive Date: 20100527
  Receipt Date: 20100519
  Transmission Date: 20101027
  Serious: Yes (Other)
  Sender: FDA-Public Use
  Company Number: US-JNJFOC-20100508680

PATIENT
  Age: 76 Year
  Sex: Female
  Weight: 50.03 kg

DRUGS (3)
  1. DITROPAN [Suspect]
     Indication: HYPERTONIC BLADDER
     Route: 065
  2. DETROL [Suspect]
     Indication: HYPERTONIC BLADDER
     Route: 065
  3. DETROL LA [Suspect]
     Indication: HYPERTONIC BLADDER
     Route: 048

REACTIONS (1)
  - HYPERSENSITIVITY [None]
